FAERS Safety Report 5230709-1 (Version None)
Quarter: 2007Q1

REPORT INFORMATION
  Report Type: 
  Country: None (occurrence: None)
  Receive Date: 20070206
  Receipt Date: 20070131
  Transmission Date: 20070707
  Serious: Yes (Other)
  Sender: FDA-Public Use
  Company Number: GB-GLAXOSMITHKLINE-B0359635A

PATIENT
  Sex: Male

DRUGS (7)
  1. SEROXAT [Suspect]
     Route: 065
     Dates: start: 19990901, end: 20021201
  2. IBUPROFEN [Suspect]
     Route: 065
  3. NUROFEN [Suspect]
     Route: 065
  4. CODEINE [Suspect]
     Route: 065
  5. ALCOHOL [Suspect]
     Route: 065
  6. COCAINE [Concomitant]
     Route: 065
  7. ECSTASY [Concomitant]
     Route: 065

REACTIONS (6)
  - AGGRESSION [None]
  - DRUG WITHDRAWAL SYNDROME [None]
  - SEXUAL DYSFUNCTION [None]
  - SOCIAL PHOBIA [None]
  - SUICIDAL IDEATION [None]
  - SUICIDE ATTEMPT [None]
